FAERS Safety Report 14562514 (Version 1)
Quarter: 2018Q1

REPORT INFORMATION
  Report Type: Spontaneous
  Country: BG (occurrence: BG)
  Receive Date: 20180222
  Receipt Date: 20180222
  Transmission Date: 20180509
  Serious: Yes (Hospitalization)
  Sender: FDA-Public Use
  Company Number: PHHY2018BG028615

PATIENT
  Age: 32 Year
  Sex: Female

DRUGS (1)
  1. COSENTYX [Suspect]
     Active Substance: SECUKINUMAB
     Indication: ANKYLOSING SPONDYLITIS
     Dosage: 150 MG, QD
     Route: 058
     Dates: start: 20180109

REACTIONS (9)
  - Hepatitis A [Recovered/Resolved]
  - Myalgia [Unknown]
  - Neck pain [Unknown]
  - Pyrexia [Unknown]
  - Decreased appetite [Unknown]
  - Inappropriate schedule of drug administration [Unknown]
  - Abdominal pain [Unknown]
  - Chromaturia [Unknown]
  - Spinal pain [Unknown]

NARRATIVE: CASE EVENT DATE: 20180109
